FAERS Safety Report 10006133 (Version 2)
Quarter: 2014Q1

REPORT INFORMATION
  Report Type: Spontaneous
  Country: US (occurrence: US)
  Receive Date: 20140313
  Receipt Date: 20140316
  Transmission Date: 20141002
  Serious: Yes (Other)
  Sender: FDA-Public Use
  Company Number: US-BAYER-2014-033720

PATIENT
  Age: 37 Year
  Sex: Female

DRUGS (2)
  1. RID 1-2-3 SYSTEM [Suspect]
  2. RID SHAMPOO [Suspect]
     Dosage: DAY 1 AND DAY 7
     Route: 061

REACTIONS (6)
  - Urinary tract infection [Recovered/Resolved]
  - Suppressed lactation [Not Recovered/Not Resolved]
  - Device ineffective [None]
  - Drug ineffective [Not Recovered/Not Resolved]
  - Erythema [Recovered/Resolved]
  - Skin fissures [Recovered/Resolved]
